FAERS Safety Report 15400967 (Version 4)
Quarter: 2020Q3

REPORT INFORMATION
  Report Type: Report from Study
  Country: BE (occurrence: BE)
  Receive Date: 20180919
  Receipt Date: 20181105
  Transmission Date: 20201104
  Serious: Yes (Hospitalization)
  Sender: FDA-Public Use
  Company Number: BE-JNJFOC-20180837794

PATIENT
  Age: 85 Year
  Sex: Female

DRUGS (15)
  1. ATORVASTATIN [Concomitant]
     Active Substance: ATORVASTATIN
     Dosage: 1 CO, QD
     Route: 048
  2. HYLO COMOD [Concomitant]
     Active Substance: HYALURONATE SODIUM
     Dosage: 1 GTT, QD
     Route: 047
  3. DEXPANTHENOL. [Concomitant]
     Active Substance: DEXPANTHENOL
     Dosage: 40 MG, QD
     Route: 048
  4. OLMETEC [Concomitant]
     Active Substance: OLMESARTAN MEDOXOMIL
     Dosage: 20 MG, QD
     Route: 048
  5. TAMSULOSINE [Concomitant]
     Active Substance: TAMSULOSIN HYDROCHLORIDE
     Dosage: 1 CO, QD
     Route: 048
  6. IBRUTINIB [Suspect]
     Active Substance: IBRUTINIB
     Indication: CHRONIC LYMPHOCYTIC LEUKAEMIA
     Route: 048
     Dates: start: 20150701, end: 20180823
  7. AGGRENOX [Concomitant]
     Active Substance: ASPIRIN\DIPYRIDAMOLE
     Dosage: 2 CO, QD
     Route: 048
  8. ISOPTO TEARS [Concomitant]
     Active Substance: HYPROMELLOSE 2910 (4000 MPA.S)
     Dosage: UNK GTT, TID
     Route: 047
  9. OXYBUTYNINE [Concomitant]
     Active Substance: OXYBUTYNIN CHLORIDE
     Dosage: 5 MG, QD
     Route: 048
  10. ZANIDIP [Concomitant]
     Active Substance: LERCANIDIPINE HYDROCHLORIDE
     Dosage: 10 MG, QD
     Route: 048
  11. IBRUTINIB [Suspect]
     Active Substance: IBRUTINIB
     Route: 048
  12. MAGNESIUM HYDROXIDE. [Concomitant]
     Active Substance: MAGNESIUM HYDROXIDE
     Dosage: 1 SACHET, QD
     Route: 048
  13. PRIMPERAN [Concomitant]
     Active Substance: METOCLOPRAMIDE HYDROCHLORIDE
     Dosage: 5 MG, QD
     Route: 048
  14. ZOVIRAX [Concomitant]
     Active Substance: ACYCLOVIR
     Dosage: 800 MG, QD
     Route: 048
  15. DEXERYL (GLYCEROL AND WHITE SOFT PARAFFIN AND LIQUID PARAFFIN) [Concomitant]
     Active Substance: GLYCERIN\MINERAL OIL\PETROLATUM
     Dosage: 1 AP, QD
     Route: 048

REACTIONS (4)
  - Neutropenia [Recovered/Resolved]
  - Cardiac tamponade [Recovered/Resolved]
  - Febrile neutropenia [Recovered/Resolved]
  - Abdominal wall haematoma [Recovered/Resolved]

NARRATIVE: CASE EVENT DATE: 20180822
